FAERS Safety Report 20688467 (Version 1)
Quarter: 2022Q2

REPORT INFORMATION
  Report Type: Spontaneous
  Country: US (occurrence: US)
  Receive Date: 20220408
  Receipt Date: 20220408
  Transmission Date: 20220720
  Serious: Yes (Death, Other)
  Sender: FDA-Public Use
  Company Number: US-ALKEM LABORATORIES LIMITED-US-ALKEM-2022-03011

PATIENT

DRUGS (11)
  1. TACROLIMUS [Suspect]
     Active Substance: TACROLIMUS
     Indication: Immunosuppression
     Dosage: UNK (ENTERALLY OR SUBLINGUALLY)
     Route: 065
  2. MYCOPHENOLATE MOFETIL [Suspect]
     Active Substance: MYCOPHENOLATE MOFETIL
     Indication: Immunosuppression
     Dosage: 1 GRAM, BID FROM DAY 90
     Route: 065
  3. BELATACEPT [Suspect]
     Active Substance: BELATACEPT
     Indication: Immunosuppression
     Dosage: 10 MILLIGRAM/KILOGRAM ON DAYS 0, 7, 14, 28, 56 AND 84
     Route: 065
  4. BELATACEPT [Suspect]
     Active Substance: BELATACEPT
     Dosage: 5 MILLIGRAM/KILOGRAM ON DAYS 112, 140, 168, 196, 224, 252, 280, 308, 336 AND 364
     Route: 065
  5. METHYLPREDNISOLONE [Suspect]
     Active Substance: METHYLPREDNISOLONE
     Indication: Immunosuppression
     Dosage: 500 MILLIGRAM, DURING SURGERY
     Route: 042
  6. METHYLPREDNISOLONE [Suspect]
     Active Substance: METHYLPREDNISOLONE
     Dosage: 0.5 MILLIGRAM/KILOGRAM, BID FOR 6 DOSES (AFTER TRANSPLANT)
     Route: 042
  7. PREDNISONE [Suspect]
     Active Substance: PREDNISONE
     Indication: Immunosuppression
     Dosage: 0.5 MILLIGRAM/KILOGRAM, QD, THROUGH DAY 14
     Route: 048
  8. PREDNISONE [Suspect]
     Active Substance: PREDNISONE
     Dosage: 0.2 MILLIGRAM/KILOGRAM, QD, THROUGH DAY 30
     Route: 048
  9. PREDNISONE [Suspect]
     Active Substance: PREDNISONE
     Dosage: 0.1 MILLIGRAM/KILOGRAM, QD, THROUGH DAY 180
     Route: 048
  10. PREDNISONE [Suspect]
     Active Substance: PREDNISONE
     Dosage: 5 MILLIGRAM, QD, THROUGH DAY 365
     Route: 048
  11. ANTI-THYMOCYTE GLOBULIN (RABBIT) NOS [Suspect]
     Active Substance: LAPINE T-LYMPHOCYTE IMMUNE GLOBULIN
     Indication: Immunosuppression
     Dosage: 1 MILLIGRAM/KILOGRAM, ON DAYS 0, 1, AND 2
     Route: 065

REACTIONS (4)
  - Restrictive allograft syndrome [Fatal]
  - Acute respiratory failure [Fatal]
  - Enterovirus infection [Fatal]
  - Rhinovirus infection [Fatal]
